FAERS Safety Report 22270494 (Version 1)
Quarter: 2023Q2

REPORT INFORMATION
  Report Type: Report from Study
  Country: US (occurrence: US)
  Receive Date: 20230501
  Receipt Date: 20230501
  Transmission Date: 20230722
  Serious: Yes (Death, Hospitalization)
  Sender: FDA-Public Use
  Company Number: US-ABBVIE-4744622

PATIENT
  Age: 83 Year
  Sex: Male

DRUGS (2)
  1. HUMIRA [Suspect]
     Active Substance: ADALIMUMAB
     Indication: Psoriasis
     Route: 058
     Dates: start: 20230224, end: 20230425
  2. HUMIRA [Suspect]
     Active Substance: ADALIMUMAB
     Indication: Psoriatic arthropathy

REACTIONS (6)
  - Death [Fatal]
  - Hospitalisation [Unknown]
  - Hypophagia [Unknown]
  - Fluid intake reduced [Unknown]
  - Dementia [Unknown]
  - Dysphagia [Unknown]

NARRATIVE: CASE EVENT DATE: 20230310
